FAERS Safety Report 20967897 (Version 1)
Quarter: 2022Q2

REPORT INFORMATION
  Report Type: Spontaneous
  Country: BR (occurrence: BR)
  Receive Date: 20220616
  Receipt Date: 20220616
  Transmission Date: 20220721
  Serious: Yes (Other)
  Sender: FDA-Public Use
  Company Number: BR-TAKEDA-2022TUS040033

PATIENT
  Sex: Female

DRUGS (2)
  1. DEXILANT [Suspect]
     Active Substance: DEXLANSOPRAZOLE
     Indication: Product used for unknown indication
     Dosage: 60 MILLIGRAM, QD
     Route: 065
  2. ESOGASTRO IBP [Concomitant]
     Indication: Helicobacter infection
     Dosage: UNK
     Route: 065

REACTIONS (6)
  - Syncope [Unknown]
  - Malaise [Unknown]
  - Pain [Unknown]
  - Dyspepsia [Unknown]
  - Chills [Unknown]
  - Adverse event [Unknown]
